FAERS Safety Report 5960063-9 (Version None)
Quarter: 2008Q4

REPORT INFORMATION
  Report Type: 
  Country: None (occurrence: None)
  Receive Date: 20081119
  Receipt Date: 20081119
  Transmission Date: 20090506
  Serious: Yes (Life-Threatening)
  Sender: FDA-Public Use
  Company Number: None

PATIENT
  Age: 66 Year
  Sex: Female

DRUGS (7)
  1. HYDROMORPHONE HCL [Suspect]
     Indication: PAIN
     Dosage: PCA 0/0.2/10
     Dates: start: 20080921, end: 20080922
  2. HYDROMORPHONE HCL [Suspect]
     Dosage: 2 MG PO Q 4 PRN
     Route: 048
     Dates: start: 20080917, end: 20080901
  3. VANCOMYCIN HCL [Concomitant]
  4. RANITIDINE [Concomitant]
  5. ONDANSETRON [Concomitant]
  6. METRONIDAZOLE [Concomitant]
  7. ESCITALOPRAM [Concomitant]

REACTIONS (5)
  - DIPLOPIA [None]
  - DYSARTHRIA [None]
  - MIOSIS [None]
  - RESPIRATORY RATE DECREASED [None]
  - SOMNOLENCE [None]
